FAERS Safety Report 8401880-5 (Version None)
Quarter: 2012Q2

REPORT INFORMATION
  Report Type: 
  Country: None (occurrence: None)
  Receive Date: 20120601
  Receipt Date: 20120408
  Transmission Date: 20120825
  Serious: No
  Sender: FDA-Public Use
  Company Number: US-ABBOTT-12P-163-0924422-00

PATIENT
  Sex: Male
  Weight: 70.37 kg

DRUGS (2)
  1. TRAZODONE HCL [Concomitant]
     Indication: INSOMNIA
  2. MARINOL [Suspect]
     Indication: DECREASED APPETITE
     Dosage: ONE CAPSULE EVERY 6 HOURS
     Route: 048
     Dates: start: 20120401

REACTIONS (2)
  - THERAPEUTIC RESPONSE UNEXPECTED [None]
  - OFF LABEL USE [None]
